FAERS Safety Report 6044478-9 (Version None)
Quarter: 2009Q1

REPORT INFORMATION
  Report Type: 
  Country: None (occurrence: None)
  Receive Date: 20090120
  Receipt Date: 20090112
  Transmission Date: 20090719
  Serious: Yes (Hospitalization, Other)
  Sender: FDA-Public Use
  Company Number: US-ASTRAZENECA-2009UW01026

PATIENT
  Age: 66 Year
  Sex: Male
  Weight: 81.6 kg

DRUGS (1)
  1. IRESSA [Suspect]
     Indication: LUNG NEOPLASM MALIGNANT
     Route: 048

REACTIONS (5)
  - BLOOD URINE [None]
  - CHROMATURIA [None]
  - FALL [None]
  - HIP FRACTURE [None]
  - NEPHROLITHIASIS [None]
